FAERS Safety Report 5995219-2 (Version None)
Quarter: 2008Q4

REPORT INFORMATION
  Report Type: 
  Country: None (occurrence: None)
  Receive Date: 20081210
  Receipt Date: 20081125
  Transmission Date: 20090506
  Serious: Yes (Other)
  Sender: FDA-Public Use
  Company Number: 1000003022

PATIENT
  Age: 24 Year
  Sex: Female

DRUGS (1)
  1. ESCITALPRAM   (ESCITALOPRAM OXALATE) [Suspect]
     Indication: DEPRESSION
     Dosage: 5 MG (5 MG, 1 IN 1 D), ORAL
     Route: 048
     Dates: start: 20080929, end: 20080929

REACTIONS (5)
  - CONVULSION [None]
  - FEELING HOT [None]
  - NAUSEA [None]
  - SYNCOPE [None]
  - TUNNEL VISION [None]
